FAERS Safety Report 9841300 (Version 1)
Quarter: 2013Q4

REPORT INFORMATION
  Report Type: Spontaneous
  Country: US (occurrence: None)
  Receive Date: 20131212
  Receipt Date: 20131212
  Transmission Date: 20140711
  Serious: Yes (Hospitalization)
  Sender: FDA-Public Use
  Company Number: 20121012CINRY3498

PATIENT
  Age: 20 Year
  Sex: Female

DRUGS (2)
  1. CINRYZE [Suspect]
     Indication: HEREDITARY ANGIOEDEMA
     Dosage: 1 IN 3 D
     Route: 042
     Dates: start: 201202
  2. CINRYZE [Suspect]
     Indication: PROPHYLAXIS
     Dosage: 1 IN 3 D
     Route: 042
     Dates: start: 201202

REACTIONS (3)
  - Hereditary angioedema [None]
  - Off label use [None]
  - Stress [None]
